FAERS Safety Report 4507805-7 (Version None)
Quarter: 2004Q4

REPORT INFORMATION
  Report Type: 
  Country: None (occurrence: None)
  Receive Date: 20041018
  Receipt Date: 20040927
  Transmission Date: 20050328
  Serious: No
  Sender: FDA-Public Use
  Company Number: 209299

PATIENT
  Age: 29 Year
  Sex: Female

DRUGS (4)
  1. XOLAIR [Suspect]
     Indication: ASTHMA
     Dosage: 150MG, 1MONTH, SUBCUTANEOUS
     Route: 058
     Dates: start: 20040901
  2. PULMICORT [Concomitant]
  3. FORADIL [Concomitant]
  4. CLARITN (LORATADINE) [Concomitant]

REACTIONS (1)
  - URTICARIA [None]
